FAERS Safety Report 7528372-X (Version None)
Quarter: 2011Q2

REPORT INFORMATION
  Report Type: 
  Country: None (occurrence: None)
  Receive Date: 20110607
  Receipt Date: 20101108
  Transmission Date: 20111010
  Serious: Yes (Hospitalization)
  Sender: FDA-Public Use
  Company Number: US-ASTRAZENECA-2010SE53110

PATIENT
  Age: 48 Year
  Sex: Female

DRUGS (1)
  1. PRILOSEC OTC [Suspect]
     Indication: DYSPEPSIA
     Route: 048

REACTIONS (10)
  - FACIAL PAIN [None]
  - ABDOMINAL DISCOMFORT [None]
  - GAIT DISTURBANCE [None]
  - RESTLESSNESS [None]
  - HEADACHE [None]
  - BURNING SENSATION [None]
  - SWELLING FACE [None]
  - ABDOMINAL PAIN UPPER [None]
  - VOMITING [None]
  - ERYTHEMA [None]
